FAERS Safety Report 4334411-X (Version None)
Quarter: 2004Q1

REPORT INFORMATION
  Report Type: 
  Country: None (occurrence: None)
  Receive Date: 20040325
  Receipt Date: 20040105
  Transmission Date: 20041129
  Serious: No
  Sender: FDA-Public Use
  Company Number: USA040155813

PATIENT
  Sex: Female
  Weight: 84 kg

DRUGS (1)
  1. FORTEO [Suspect]
     Indication: OSTEOPOROSIS
     Dates: start: 20031223

REACTIONS (5)
  - ARTHRITIS [None]
  - BURNING SENSATION [None]
  - DIFFICULTY IN WALKING [None]
  - MUSCLE CRAMP [None]
  - PAIN IN EXTREMITY [None]
